FAERS Safety Report 20421862 (Version 1)
Quarter: 2022Q1

REPORT INFORMATION
  Report Type: Spontaneous
  Country: US (occurrence: None)
  Receive Date: 20220202
  Receipt Date: 20220202
  Transmission Date: 20220423
  Serious: Yes (Hospitalization)
  Sender: FDA-Public Use
  Company Number: None

PATIENT
  Age: 30 Year
  Sex: Male
  Weight: 70.3 kg

DRUGS (10)
  1. DEXAMETHASONE [Suspect]
     Active Substance: DEXAMETHASONE
     Indication: Prophylaxis
     Dosage: FREQUENCY : ONCE;?
     Route: 040
     Dates: start: 20210422, end: 20210422
  2. ONDANSETRON [Suspect]
     Active Substance: ONDANSETRON
     Indication: Prophylaxis
     Dosage: FREQUENCY : ONCE;?
     Route: 040
     Dates: start: 20210422, end: 20210422
  3. MIDAZOLAM [Suspect]
     Active Substance: MIDAZOLAM
  4. FRESENIUS SIMPLIST SYR [Concomitant]
  5. BUPIVACAINE [Concomitant]
     Active Substance: BUPIVACAINE
  6. CEFAZOLIN [Concomitant]
     Active Substance: CEFAZOLIN
  7. LIDOCAINE [Concomitant]
     Active Substance: LIDOCAINE
  8. LIDOCAINE [Concomitant]
     Active Substance: LIDOCAINE
  9. PROPOFOL [Concomitant]
     Active Substance: PROPOFOL
  10. LACTATED RINGERS SOLUTION [Concomitant]
     Active Substance: CALCIUM CHLORIDE\POTASSIUM CHLORIDE\SODIUM CHLORIDE\SODIUM LACTATE

REACTIONS (1)
  - Hypersensitivity [None]

NARRATIVE: CASE EVENT DATE: 20210422
